FAERS Safety Report 14066699 (Version 2)
Quarter: 2018Q1

REPORT INFORMATION
  Report Type: Report from Study
  Country: None (occurrence: PT)
  Receive Date: 20171010
  Receipt Date: 20180223
  Transmission Date: 20180508
  Serious: Yes (Other)
  Sender: FDA-Public Use
  Company Number: PT-ABBVIE-17K-163-2124768-00

PATIENT
  Age: 31 Year
  Sex: Female

DRUGS (8)
  1. HUMIRA [Suspect]
     Active Substance: ADALIMUMAB
     Indication: CROHN^S DISEASE
     Dosage: LOADING DOSE 1
     Route: 058
     Dates: start: 20160517, end: 20160517
  2. HUMIRA [Suspect]
     Active Substance: ADALIMUMAB
     Route: 058
  3. HUMIRA [Suspect]
     Active Substance: ADALIMUMAB
     Dosage: LOADING DOSE 2
     Route: 058
     Dates: start: 20160531, end: 20160531
  4. HUMIRA [Suspect]
     Active Substance: ADALIMUMAB
     Route: 058
  5. HUMIRA [Suspect]
     Active Substance: ADALIMUMAB
     Route: 058
  6. HUMIRA [Suspect]
     Active Substance: ADALIMUMAB
     Dosage: LOADING DOSE 2
     Route: 058
     Dates: start: 20160614
  7. HUMIRA [Suspect]
     Active Substance: ADALIMUMAB
     Route: 058
  8. HUMIRA [Suspect]
     Active Substance: ADALIMUMAB
     Route: 058

REACTIONS (14)
  - Erythema [Unknown]
  - Condition aggravated [Unknown]
  - Photophobia [Unknown]
  - Skin fissures [Unknown]
  - Foetal death [Unknown]
  - Headache [Unknown]
  - Dermatitis [Unknown]
  - Abortion spontaneous [Unknown]
  - Dry mouth [Unknown]
  - Skin exfoliation [Unknown]
  - Exposure during pregnancy [Unknown]
  - Amnesia [Unknown]
  - Hyperacusis [Unknown]
  - Nausea [Unknown]

NARRATIVE: CASE EVENT DATE: 20160517
